FAERS Safety Report 5074592-6 (Version None)
Quarter: 2006Q3

REPORT INFORMATION
  Report Type: 
  Country: None (occurrence: None)
  Receive Date: 20060808
  Receipt Date: 20051019
  Transmission Date: 20061208
  Serious: No
  Sender: FDA-Public Use
  Company Number: US-AMGEN-KDL154641

PATIENT
  Sex: Female

DRUGS (5)
  1. EPOGEN [Suspect]
     Indication: ANAEMIA
     Dates: start: 20050601, end: 20051001
  2. ALBUTEROL SPIROS [Concomitant]
  3. LASIX [Concomitant]
  4. ALDACTONE [Concomitant]
  5. ALLEGRA [Concomitant]

REACTIONS (6)
  - ABDOMINAL PAIN [None]
  - ASTHENIA [None]
  - MALAISE [None]
  - NAUSEA [None]
  - ORAL CANDIDIASIS [None]
  - THERAPEUTIC RESPONSE DECREASED [None]
